FAERS Safety Report 18940822 (Version 2)
Quarter: 2021Q2

REPORT INFORMATION
  Report Type: Spontaneous
  Country: US (occurrence: US)
  Receive Date: 20210225
  Receipt Date: 20210525
  Transmission Date: 20210717
  Serious: Yes (Death, Hospitalization, Other)
  Sender: FDA-Public Use
  Company Number: US-INDIVIOR EUROPE LIMITED-INDV-128582-2021

PATIENT

DRUGS (2)
  1. 8?TETRAHYDROCANNABINOL [Suspect]
     Active Substance: .DELTA.8-TETRAHYDROCANNABINOL
     Indication: PRODUCT USED FOR UNKNOWN INDICATION
     Dosage: UNK
     Route: 064
  2. BUPRENORPHINE. [Suspect]
     Active Substance: BUPRENORPHINE
     Indication: DRUG DEPENDENCE
     Dosage: UNK
     Route: 064
     Dates: start: 201610, end: 20170620

REACTIONS (8)
  - Premature baby [Recovered/Resolved]
  - Necrotising enterocolitis neonatal [Fatal]
  - Small for dates baby [Unknown]
  - Drug withdrawal syndrome neonatal [Unknown]
  - Low birth weight baby [Unknown]
  - Foetal exposure during pregnancy [Recovered/Resolved]
  - Polycythaemia neonatorum [Unknown]
  - Hypoglycaemia neonatal [Unknown]

NARRATIVE: CASE EVENT DATE: 201610
